FAERS Safety Report 6965799-9 (Version None)
Quarter: 2010Q3

REPORT INFORMATION
  Report Type: 
  Country: None (occurrence: None)
  Receive Date: 20100903
  Receipt Date: 20100827
  Transmission Date: 20110219
  Serious: Yes (Other)
  Sender: FDA-Public Use
  Company Number: CA-JNJFOC-20100900135

PATIENT
  Sex: Male

DRUGS (3)
  1. SIMPONI [Suspect]
     Indication: ANKYLOSING SPONDYLITIS
     Route: 058
  2. FENTANYL-75 [Concomitant]
     Route: 062
  3. PERINDOPRIL ERBUMINE [Concomitant]

REACTIONS (2)
  - CHEST DISCOMFORT [None]
  - DYSPNOEA [None]
